FAERS Safety Report 9525335 (Version 1)
Quarter: 2013Q1

REPORT INFORMATION
  Report Type: Spontaneous
  Country: US (occurrence: None)
  Receive Date: 20130313
  Receipt Date: 20130313
  Transmission Date: 20140127
  Serious: No
  Sender: FDA-Public Use
  Company Number: 1000029960

PATIENT
  Age: 60 Year
  Sex: Female

DRUGS (8)
  1. SAVELLA [Suspect]
     Indication: FIBROMYALGIA
     Dosage: 12.5 MG (12.5 MG, 1 IN 1 D), ORAL
     Route: 048
     Dates: start: 201204, end: 201204
  2. PERCOCET [Suspect]
     Indication: PAIN
  3. BISOPROLOL [Concomitant]
  4. SPIRONOLACTONE [Concomitant]
  5. LEVOTHYROXINE [Concomitant]
  6. PREVACID (LANSOPRAZOLE) [Concomitant]
  7. FLONASE (FLUTICASONE PROPIONATE) [Concomitant]
  8. KLONOPIN (CLONAZEPAM) [Concomitant]

REACTIONS (1)
  - Aphthous stomatitis [None]
